FAERS Safety Report 6105244-9 (Version None)
Quarter: 2009Q1

REPORT INFORMATION
  Report Type: 
  Country: None (occurrence: None)
  Receive Date: 20090227
  Receipt Date: 20080714
  Transmission Date: 20090719
  Serious: Yes (Hospitalization)
  Sender: FDA-Public Use
  Company Number: RB-2474-2008

PATIENT
  Sex: Female

DRUGS (3)
  1. SUBOXONE [Suspect]
     Indication: DRUG DEPENDENCE
     Dosage: 8 MG BID TRANSPLACENTAL, 8 MG QD TRANSPLACENTAL
     Route: 064
     Dates: start: 20071001, end: 20071101
  2. SUBOXONE [Suspect]
     Indication: DRUG DEPENDENCE
     Dosage: 8 MG BID TRANSPLACENTAL, 8 MG QD TRANSPLACENTAL
     Route: 064
     Dates: end: 20080706
  3. SUBUTEX [Suspect]
     Indication: DRUG DEPENDENCE
     Dosage: 8 MG BID TRANSPLACENTAL
     Route: 064
     Dates: start: 20071101, end: 20071229

REACTIONS (2)
  - DECREASED APPETITE [None]
  - DIARRHOEA [None]
